FAERS Safety Report 8379780-9 (Version None)
Quarter: 2012Q2

REPORT INFORMATION
  Report Type: 
  Country: None (occurrence: None)
  Receive Date: 20120523
  Receipt Date: 20120515
  Transmission Date: 20120825
  Serious: Yes (Hospitalization)
  Sender: FDA-Public Use
  Company Number: CA-UCBSA-057451

PATIENT
  Age: 63 Year
  Sex: Female
  Weight: 60.7 kg

DRUGS (7)
  1. PLAQUENIL [Concomitant]
     Indication: RHEUMATOID ARTHRITIS
     Route: 048
     Dates: start: 20080501
  2. VENTOLIN [Concomitant]
     Indication: ASTHMA
     Dosage: 2 PUFFS
     Route: 055
  3. SYMBICORT [Concomitant]
     Indication: ASTHMA
     Dosage: 2 PUFFS/ DAY
     Route: 055
  4. CIMZIA [Suspect]
     Indication: RHEUMATOID ARTHRITIS
     Route: 058
     Dates: start: 20111123, end: 20120318
  5. CIMZIA [Suspect]
     Dosage: NO OF INTAKES 3
     Route: 058
     Dates: start: 20110929, end: 20111026
  6. METHOTREXATE [Concomitant]
     Indication: RHEUMATOID ARTHRITIS
     Route: 058
     Dates: start: 20090901
  7. SULFASALAZINE [Concomitant]
     Indication: RHEUMATOID ARTHRITIS
     Route: 048
     Dates: start: 20100301

REACTIONS (1)
  - PNEUMONIA [None]
